FAERS Safety Report 5861093-8 (Version None)
Quarter: 2008Q3

REPORT INFORMATION
  Report Type: 
  Country: None (occurrence: None)
  Receive Date: 20080827
  Receipt Date: 20080222
  Transmission Date: 20090109
  Serious: No
  Sender: FDA-Public Use
  Company Number: US-ABBOTT-08P-163-0437649-00

PATIENT
  Sex: Male
  Weight: 102.2 kg

DRUGS (2)
  1. COATED PDS [Suspect]
     Indication: LOW DENSITY LIPOPROTEIN INCREASED
     Route: 048
     Dates: start: 20070901, end: 20080211
  2. COATED PDS [Suspect]
     Route: 048
     Dates: start: 20080211

REACTIONS (2)
  - FLUSHING [None]
  - SKIN BURNING SENSATION [None]
